FAERS Safety Report 19376433 (Version 5)
Quarter: 2022Q1

REPORT INFORMATION
  Report Type: Spontaneous
  Country: ES (occurrence: ES)
  Receive Date: 20210605
  Receipt Date: 20220107
  Transmission Date: 20220424
  Serious: Yes (Hospitalization)
  Sender: FDA-Public Use
  Company Number: ES-PFIZER INC-2021541144

PATIENT
  Age: 2 Month
  Sex: Male
  Weight: 5.84 kg

DRUGS (6)
  1. ACETAMINOPHEN [Suspect]
     Active Substance: ACETAMINOPHEN
     Indication: Prophylaxis
     Dosage: TOTAL, DOSE 1, SINGLE
     Route: 048
     Dates: start: 20210510, end: 20210510
  2. NIMENRIX [Suspect]
     Active Substance: CLOSTRIDIUM TETANI TOXOID ANTIGEN (FORMALDEHYDE INACTIVATED)\MENINGOCOCCAL POLYSACCHARIDE VACCINE, G
     Indication: Immunisation
     Dosage: 1ST DOSE, SINGLE
     Route: 030
     Dates: start: 20210510, end: 20210510
  3. TRUMENBA [Suspect]
     Active Substance: NEISSERIA MENINGITIDIS SEROGROUP B RECOMBINANT LP2086 A05 PROTEIN VARIANT ANTIGEN\NEISSERIA MENINGIT
     Indication: Immunisation
     Dosage: 1ST DOSE, 120 UG, SINGLE
     Route: 030
     Dates: start: 20210510, end: 20210510
  4. PREVNAR 13 [Concomitant]
     Active Substance: PNEUMOCOCCAL 13-VALENT CONJUGATE VACCINE
     Indication: Immunisation
     Dosage: TOATAL 1ST DOSE, SINGLE
     Route: 030
     Dates: start: 20210510, end: 20210510
  5. VAXELIS [Concomitant]
     Active Substance: DIPHTHERIA AND TETANUS TOXOIDS AND ACELLULAR PERTUSSIS ADSORBED, INACTIVATED POLIOVIRUS AND HAEMOPHI
     Indication: Immunisation
     Dosage: TOTAL, UNKNOWN, SINGLE
     Route: 030
     Dates: start: 20210510, end: 20210510
  6. VITAMIN D [Concomitant]
     Active Substance: VITAMIN D NOS
     Indication: Prophylaxis
     Dosage: 2 DROP, ONCE A DAY (2 DROP, DAILY)
     Route: 048
     Dates: start: 20210316

REACTIONS (3)
  - Human herpesvirus 7 infection [Recovered/Resolved]
  - Pyrexia [Recovered/Resolved]
  - Infection [Recovered/Resolved]

NARRATIVE: CASE EVENT DATE: 20210510
